FAERS Safety Report 5485293-4 (Version None)
Quarter: 2007Q4

REPORT INFORMATION
  Report Type: 
  Country: None (occurrence: None)
  Receive Date: 20071010
  Receipt Date: 20071010
  Transmission Date: 20080405
  Serious: Yes (Other)
  Sender: FDA-Public Use
  Company Number: None

PATIENT
  Age: 57 Year
  Sex: Female
  Weight: 104.7809 kg

DRUGS (1)
  1. ELOXATIN [Suspect]
     Indication: COLON CANCER
     Dosage: 200 MG Q2 WEEK IV
     Route: 042
     Dates: start: 20070924, end: 20071008

REACTIONS (3)
  - CHEST PAIN [None]
  - DYSPNOEA [None]
  - FLUSHING [None]
